FAERS Safety Report 7656240-1 (Version None)
Quarter: 2011Q3

REPORT INFORMATION
  Report Type: 
  Country: None (occurrence: None)
  Receive Date: 20110804
  Receipt Date: 20110801
  Transmission Date: 20111222
  Serious: Yes (Death)
  Sender: FDA-Public Use
  Company Number: MX-SANOFI-AVENTIS-2011SA049034

PATIENT
  Age: 66 Year
  Sex: Male

DRUGS (2)
  1. SHORANT [Suspect]
     Dates: end: 20100730
  2. LANTUS [Suspect]
     Route: 058
     Dates: end: 20100730

REACTIONS (1)
  - PNEUMONIA [None]
